FAERS Safety Report 5354180-4 (Version None)
Quarter: 2007Q2

REPORT INFORMATION
  Report Type: 
  Country: None (occurrence: None)
  Receive Date: 20070612
  Receipt Date: 20070531
  Transmission Date: 20071010
  Serious: No
  Sender: FDA-Public Use
  Company Number: US-ASTRAZENECA-2006UW10856

PATIENT
  Sex: Female

DRUGS (3)
  1. SEROQUEL [Suspect]
     Indication: ANXIETY
     Dosage: 800MG, 600MG
     Route: 048
  2. SEROQUEL [Suspect]
     Indication: DEPRESSION
     Dosage: 800MG, 600MG
     Route: 048
  3. SEROQUEL [Suspect]
     Indication: SCHIZOPHRENIA
     Dosage: 800MG, 600MG
     Route: 048

REACTIONS (1)
  - DIABETES MELLITUS [None]
